FAERS Safety Report 13034677 (Version 4)
Quarter: 2017Q1

REPORT INFORMATION
  Report Type: Report from Study
  Country: US (occurrence: US)
  Receive Date: 20161216
  Receipt Date: 20170205
  Transmission Date: 20170428
  Serious: Yes (Death, Other)
  Sender: FDA-Public Use
  Company Number: PHEH2016US032582

PATIENT
  Age: 74 Year
  Sex: Female
  Weight: 58.4 kg

DRUGS (1)
  1. VOTRIENT [Suspect]
     Active Substance: PAZOPANIB HYDROCHLORIDE
     Indication: PRODUCT USED FOR UNKNOWN INDICATION
     Dosage: 200 MG, UNK
     Route: 048

REACTIONS (20)
  - Asthenia [Unknown]
  - Urinary tract infection [Unknown]
  - Paraesthesia [Unknown]
  - Nervousness [Unknown]
  - Nasal dryness [Unknown]
  - Abdominal pain [Unknown]
  - Hypoaesthesia [Unknown]
  - Pelvic mass [Unknown]
  - Weight decreased [Unknown]
  - Dry skin [Unknown]
  - Death [Fatal]
  - Disease progression [Unknown]
  - Fatigue [Unknown]
  - Sleep disorder [Unknown]
  - Neuropathy peripheral [Unknown]
  - Dry mouth [Unknown]
  - Abdominal mass [Unknown]
  - Back pain [Unknown]
  - Gastrointestinal disorder [Unknown]
  - Skin discolouration [Unknown]

NARRATIVE: CASE EVENT DATE: 20160722
